FAERS Safety Report 14959805 (Version 1)
Quarter: 2018Q2

REPORT INFORMATION
  Report Type: Spontaneous
  Country: FR (occurrence: FR)
  Receive Date: 20180531
  Receipt Date: 20180531
  Transmission Date: 20180711
  Serious: Yes (Disabling)
  Sender: FDA-Public Use
  Company Number: FR-B. BRAUN MEDICAL INC.-2048811

PATIENT
  Age: 12 Month

DRUGS (2)
  1. CALCIUM CHLORIDE. [Suspect]
     Active Substance: CALCIUM CHLORIDE
     Route: 041
  2. SODIUM CHLORIDE INJECTION USP 0264-7800-09 [Suspect]
     Active Substance: SODIUM CHLORIDE
     Route: 041
     Dates: start: 20171206

REACTIONS (4)
  - Infusion site extravasation [None]
  - Amputation [None]
  - Skin necrosis [None]
  - Infusion site ischaemia [None]
